FAERS Safety Report 19485305 (Version 1)
Quarter: 2021Q3

REPORT INFORMATION
  Report Type: Spontaneous
  Country: US (occurrence: US)
  Receive Date: 20210702
  Receipt Date: 20210702
  Transmission Date: 20211014
  Serious: No
  Sender: FDA-Public Use
  Company Number: US-TEVA-2021-US-1926349

PATIENT
  Age: 62 Year
  Sex: Female
  Weight: 57.61 kg

DRUGS (3)
  1. AJOVY [Suspect]
     Active Substance: FREMANEZUMAB-VFRM
     Indication: MIGRAINE
  2. AJOVY [Suspect]
     Active Substance: FREMANEZUMAB-VFRM
     Indication: HEADACHE
  3. AJOVY [Suspect]
     Active Substance: FREMANEZUMAB-VFRM
     Indication: TRIGEMINAL NEURALGIA
     Route: 065
     Dates: start: 202010

REACTIONS (2)
  - Intentional dose omission [Unknown]
  - Pain [Not Recovered/Not Resolved]
